FAERS Safety Report 19958251 (Version 1)
Quarter: 2021Q4

REPORT INFORMATION
  Report Type: Spontaneous
  Country: US (occurrence: US)
  Receive Date: 20211015
  Receipt Date: 20211015
  Transmission Date: 20220303
  Serious: Yes (Other)
  Sender: FDA-Public Use
  Company Number: US-SUNOVION-2021SUN003897

PATIENT
  Sex: Male

DRUGS (2)
  1. KYNMOBI [Suspect]
     Active Substance: APOMORPHINE HYDROCHLORIDE
     Indication: Parkinson^s disease
     Dosage: 15 MG
     Route: 060
  2. NYSTATIN [Concomitant]
     Active Substance: NYSTATIN
     Indication: Lichen planus

REACTIONS (6)
  - Dystonia [Not Recovered/Not Resolved]
  - Frustration tolerance decreased [Not Recovered/Not Resolved]
  - Gingival discomfort [Not Recovered/Not Resolved]
  - Glossitis [Not Recovered/Not Resolved]
  - Cheilitis [Not Recovered/Not Resolved]
  - Stomatitis [Unknown]
